FAERS Safety Report 16803148 (Version 4)
Quarter: 2020Q1

REPORT INFORMATION
  Report Type: Report from Study
  Country: None (occurrence: US)
  Receive Date: 20190913
  Receipt Date: 20200212
  Transmission Date: 20200409
  Serious: Yes (Hospitalization)
  Sender: FDA-Public Use
  Company Number: US-BIOVITRUM-2019US2718

PATIENT
  Age: 45 Year
  Sex: Female

DRUGS (4)
  1. KINERET [Suspect]
     Active Substance: ANAKINRA
     Indication: CRYOPYRIN ASSOCIATED PERIODIC SYNDROME
     Route: 058
     Dates: start: 20190727
  2. KINERET [Suspect]
     Active Substance: ANAKINRA
     Dosage: DOSE, UNITS: 100MG, 100MG, 200MG FREQUENCY: MORNING, NOON, AT BEDTIME
     Route: 058
  3. KINERET [Suspect]
     Active Substance: ANAKINRA
     Dosage: 1 INJECTION EVERY 4 HOURS
     Route: 058
  4. KINERET [Suspect]
     Active Substance: ANAKINRA
     Route: 058

REACTIONS (6)
  - Product dose omission [Recovered/Resolved]
  - Inflammation [Unknown]
  - Off label use [Unknown]
  - Nausea [Unknown]
  - Drug ineffective [Unknown]
  - Vomiting [Recovered/Resolved]

NARRATIVE: CASE EVENT DATE: 20190822
